FAERS Safety Report 9204864 (Version 2)
Quarter: 2013Q2

REPORT INFORMATION
  Report Type: Spontaneous
  Country: IT (occurrence: IT)
  Receive Date: 20130402
  Receipt Date: 20130412
  Transmission Date: 20140414
  Serious: Yes (Hospitalization)
  Sender: FDA-Public Use
  Company Number: IT-009507513-1304ITA000109

PATIENT
  Age: 56 Year
  Sex: Male

DRUGS (3)
  1. VICTRELIS [Suspect]
     Indication: HEPATITIS C
     Dosage: 4 DF, QD
     Route: 048
     Dates: start: 20130315, end: 20130328
  2. PEGASYS [Suspect]
     Indication: HEPATITIS CHRONIC ACTIVE
     Dosage: 180 MICROGRAM, UNK
     Route: 058
     Dates: start: 20130315, end: 20130328
  3. REBETOL [Suspect]
     Indication: HEPATITIS CHRONIC ACTIVE
     Dosage: 1200 MG
     Route: 048
     Dates: start: 20130315, end: 20130328

REACTIONS (2)
  - Leukopenia [Recovered/Resolved]
  - Thrombocytopenia [Recovered/Resolved]
